FAERS Safety Report 7288362-1 (Version None)
Quarter: 2011Q1

REPORT INFORMATION
  Report Type: 
  Country: None (occurrence: None)
  Receive Date: 20110211
  Receipt Date: 20110205
  Transmission Date: 20110831
  Serious: Yes (Hospitalization)
  Sender: FDA-Public Use
  Company Number: IT-ROCHE-758208

PATIENT
  Sex: Female

DRUGS (2)
  1. ROACTEMRA [Suspect]
     Route: 042
  2. ROACTEMRA [Suspect]
     Route: 042
     Dates: start: 20100526, end: 20100630

REACTIONS (4)
  - ABDOMINAL PAIN [None]
  - DECREASED APPETITE [None]
  - NAUSEA [None]
  - DIARRHOEA [None]
